FAERS Safety Report 16962231 (Version 1)
Quarter: 2019Q4

REPORT INFORMATION
  Report Type: Spontaneous
  Country: US (occurrence: US)
  Receive Date: 20191025
  Receipt Date: 20191025
  Transmission Date: 20200122
  Serious: Yes (Death, Disabling, Other)
  Sender: FDA-Public Use
  Company Number: US-SA-2019SA295010

PATIENT
  Age: 90 Year
  Sex: Male

DRUGS (1)
  1. GOLD BOND ORIGINAL STRENGTH POWDER [Suspect]
     Active Substance: MENTHOL\ZINC OXIDE

REACTIONS (8)
  - Pain [Unknown]
  - Loss of personal independence in daily activities [Unknown]
  - Anxiety [Unknown]
  - Lung cancer metastatic [Fatal]
  - Exposure to toxic agent [Fatal]
  - Occupational exposure to product [Fatal]
  - Brain neoplasm malignant [Unknown]
  - Skin cancer [Unknown]

NARRATIVE: CASE EVENT DATE: 20171215
